FAERS Safety Report 19004302 (Version 1)
Quarter: 2021Q1

REPORT INFORMATION
  Report Type: Spontaneous
  Country: DE (occurrence: DE)
  Receive Date: 20210313
  Receipt Date: 20210313
  Transmission Date: 20210420
  Serious: Yes (Other)
  Sender: FDA-Public Use
  Company Number: DE-HORMOSAN PHARMA GMBH-2021-02132

PATIENT
  Sex: Male

DRUGS (4)
  1. IBUPROFEN. [Concomitant]
     Active Substance: IBUPROFEN
     Indication: INTERVERTEBRAL DISC PROTRUSION
     Dosage: 2 DOSAGE FORM, QD
     Route: 065
  2. BEROTEC [Concomitant]
     Active Substance: FENOTEROL HYDROBROMIDE
     Indication: ASTHMA
     Dosage: UNK, (SPORADIC USE)
     Route: 065
  3. TIMO COMOD [Concomitant]
     Indication: OCULAR DISCOMFORT
     Dosage: 2 DOSAGE FORM, QD
     Route: 065
  4. TADALAFIL?HORMOSAN 5 MG FILMTABLETTEN [Suspect]
     Active Substance: TADALAFIL
     Indication: ERECTILE DYSFUNCTION
     Dosage: 5 MILLIGRAM (SINCE HALF YEAR)
     Route: 065
     Dates: start: 2020

REACTIONS (1)
  - Intraocular pressure increased [Unknown]
